FAERS Safety Report 9779247 (Version 2)
Quarter: 2014Q1

REPORT INFORMATION
  Report Type: Spontaneous
  Country: IT (occurrence: IT)
  Receive Date: 20131223
  Receipt Date: 20140227
  Transmission Date: 20141002
  Serious: Yes (Hospitalization)
  Sender: FDA-Public Use
  Company Number: IT-TEVA-450756ISR

PATIENT
  Age: 23 Year
  Sex: Male

DRUGS (3)
  1. IBUPROFEN [Suspect]
     Indication: SUICIDE ATTEMPT
     Dosage: 6 G TOTAL
     Route: 048
     Dates: start: 20131201, end: 20131201
  2. TACHIDOL [Suspect]
     Indication: SUICIDE ATTEMPT
     Dosage: 8 DF TOTAL
     Route: 048
     Dates: start: 20131201, end: 20131201
  3. ESCIN [Suspect]
     Indication: SUICIDE ATTEMPT
     Dosage: 320 MG TOTAL
     Route: 048
     Dates: start: 20131201, end: 20131201

REACTIONS (3)
  - Drug abuse [Recovering/Resolving]
  - Suicide attempt [Recovering/Resolving]
  - Tachycardia [Unknown]
